FAERS Safety Report 21096656 (Version 1)
Quarter: 2022Q3

REPORT INFORMATION
  Report Type: Spontaneous
  Country: BR (occurrence: BR)
  Receive Date: 20220718
  Receipt Date: 20220718
  Transmission Date: 20221027
  Serious: Yes (Other)
  Sender: FDA-Public Use
  Company Number: BR-009507513-2207BRA004872

PATIENT
  Sex: Female

DRUGS (1)
  1. JANUMET [Suspect]
     Active Substance: METFORMIN HYDROCHLORIDE\SITAGLIPTIN PHOSPHATE
     Indication: Glucose tolerance impaired
     Dosage: STRENGHT: 50/850 MG
     Route: 048

REACTIONS (3)
  - Hormone receptor positive breast cancer [Unknown]
  - Product prescribing issue [Unknown]
  - Product use in unapproved indication [Unknown]
